FAERS Safety Report 9949133 (Version 1)
Quarter: 2014Q1

REPORT INFORMATION
  Report Type: Spontaneous
  Country: US (occurrence: US)
  Receive Date: 20140304
  Receipt Date: 20140304
  Transmission Date: 20141002
  Serious: No
  Sender: FDA-Public Use
  Company Number: US-PFIZER INC-2014061185

PATIENT
  Age: 57 Year
  Sex: Male
  Weight: 99.77 kg

DRUGS (13)
  1. VENLAFAXINE HCL [Suspect]
     Indication: DEPRESSION
     Dosage: 150 MG, DAILY
     Route: 048
     Dates: start: 2010
  2. VENLAFAXINE HCL [Suspect]
     Indication: ANXIETY
     Dosage: 300 MG, DAILY
     Route: 048
  3. VENLAFAXINE HCL [Suspect]
     Dosage: 37.5 MG, DAILY
     Route: 048
     Dates: start: 20140216, end: 20140219
  4. VENLAFAXINE HCL [Suspect]
     Dosage: 75 MG, UNK
     Route: 048
     Dates: start: 20140220, end: 201402
  5. VENLAFAXINE HCL [Suspect]
     Dosage: 37.5 MG, DAILY
     Route: 048
     Dates: start: 201402, end: 201402
  6. VENLAFAXINE HCL [Suspect]
     Dosage: 75 MG, DAILY
     Route: 048
     Dates: start: 201402
  7. PRILOSEC [Concomitant]
     Indication: GASTROOESOPHAGEAL REFLUX DISEASE
     Dosage: 20 MG, UNK
  8. DIOVAN (VALSARTAN) [Concomitant]
     Indication: BLOOD PRESSURE ABNORMAL
     Dosage: 80 MG, UNK
  9. REMERON [Concomitant]
     Indication: DEPRESSION
     Dosage: 7.5 MG, DAILY
  10. BUSPAR [Concomitant]
     Indication: ANXIETY
     Dosage: 5 MG, 3X/DAY
  11. LAMICTAL [Concomitant]
     Indication: MOOD ALTERED
     Dosage: 50 MG, DAILY
  12. TEMAZEPAM [Concomitant]
     Indication: SLEEP DISORDER
     Dosage: 60 MG, DAILY
  13. MELATONIN [Concomitant]
     Indication: SLEEP DISORDER
     Dosage: 10 MG, DAILY

REACTIONS (6)
  - Panic attack [Recovering/Resolving]
  - Nervousness [Recovering/Resolving]
  - Head discomfort [Recovering/Resolving]
  - Abdominal discomfort [Recovering/Resolving]
  - Tremor [Recovering/Resolving]
  - Drug ineffective [Recovering/Resolving]
